FAERS Safety Report 21195874 (Version 3)
Quarter: 2022Q3

REPORT INFORMATION
  Report Type: Spontaneous
  Country: RU (occurrence: RU)
  Receive Date: 20220810
  Receipt Date: 20220829
  Transmission Date: 20221026
  Serious: Yes (Other)
  Sender: FDA-Public Use
  Company Number: RU-NOVARTISPH-NVSC2022RU180538

PATIENT
  Sex: Female

DRUGS (5)
  1. BROLUCIZUMAB [Suspect]
     Active Substance: BROLUCIZUMAB
     Indication: Neovascular age-related macular degeneration
     Dosage: 6 MG, QD
     Route: 031
     Dates: start: 20220420
  2. BROLUCIZUMAB [Suspect]
     Active Substance: BROLUCIZUMAB
     Dosage: 6 MG, QD
     Route: 031
     Dates: start: 20220522
  3. BROLUCIZUMAB [Suspect]
     Active Substance: BROLUCIZUMAB
     Dosage: 6 MG, QD
     Route: 031
     Dates: start: 20220626
  4. LINAGLIPTIN [Concomitant]
     Active Substance: LINAGLIPTIN
     Indication: Diabetes mellitus
     Dosage: 1 DOSAGE FORM, QD (ONCE DAILY IN THE MORNING)
     Route: 065
  5. IBUPROFEN [Concomitant]
     Active Substance: IBUPROFEN
     Indication: Osteoarthritis
     Dosage: 1 DOSAGE FORM
     Route: 065

REACTIONS (15)
  - Conjunctivitis [Recovered/Resolved]
  - Eye pain [Recovered/Resolved]
  - Uveitis [Not Recovered/Not Resolved]
  - Retinal exudates [Unknown]
  - Body temperature increased [Unknown]
  - Vitreous opacities [Recovering/Resolving]
  - Ocular hyperaemia [Not Recovered/Not Resolved]
  - Eye pain [Not Recovered/Not Resolved]
  - Visual acuity reduced [Not Recovered/Not Resolved]
  - Cyclitis [Recovering/Resolving]
  - Anterior chamber inflammation [Unknown]
  - Keratic precipitates [Unknown]
  - Corneal oedema [Unknown]
  - Iris disorder [Unknown]
  - Papilloedema [Unknown]

NARRATIVE: CASE EVENT DATE: 20220523
